FAERS Safety Report 9737168 (Version 1)
Quarter: 2013Q4

REPORT INFORMATION
  Report Type: Spontaneous
  Country: US (occurrence: US)
  Receive Date: 20131206
  Receipt Date: 20131206
  Transmission Date: 20140711
  Serious: Yes (Death)
  Sender: FDA-Public Use
  Company Number: US-ROCHE-1308909

PATIENT
  Age: 60 Year
  Sex: Male

DRUGS (1)
  1. AVASTIN [Suspect]
     Indication: GLIOBLASTOMA
     Dosage: WAS ON FOR A FEW MONTHS, 3-4 MONTHS RECEIVED
     Route: 042
     Dates: start: 20130508, end: 20131023

REACTIONS (2)
  - Brain neoplasm [Fatal]
  - Drug effect decreased [Fatal]
